FAERS Safety Report 6927989-0 (Version None)
Quarter: 2010Q3

REPORT INFORMATION
  Report Type: 
  Country: None (occurrence: None)
  Receive Date: 20100817
  Receipt Date: 20100806
  Transmission Date: 20110219
  Serious: Yes (Other)
  Sender: FDA-Public Use
  Company Number: JP-BRISTOL-MYERS SQUIBB COMPANY-15221864

PATIENT
  Age: 1 Day
  Sex: Male
  Weight: 2 kg

DRUGS (7)
  1. ABILIFY [Suspect]
     Indication: SCHIZOPHRENIA
     Dosage: FORMULATION:TABS 6 MG.DEC09-UNK 01MAY10-18MAY10 12 MG BID,DURATION 18DAYS
     Route: 064
     Dates: start: 20091201, end: 20100518
  2. ABILIFY [Suspect]
     Indication: SCHIZOPHRENIA
     Dosage: FORMULATION:SOLUTION 1%
     Route: 064
     Dates: start: 20100331, end: 20100430
  3. RITODRINE HYDROCHLORIDE [Concomitant]
     Dates: start: 20100321
  4. RITODRINE HCL [Concomitant]
     Dosage: FORMULATION:INJ
     Dates: start: 20100331, end: 20100518
  5. BENZALIN [Concomitant]
     Dosage: FORMULATION:TAB
     Dates: start: 20100331
  6. FERROSTEC [Concomitant]
     Dosage: FORMULATION:TAB
     Dates: start: 20100412, end: 20100518
  7. MAGMITT [Concomitant]
     Dosage: FORMULATION:TAB
     Dates: start: 20100412

REACTIONS (1)
  - SMALL FOR DATES BABY [None]
